FAERS Safety Report 10234681 (Version 1)
Quarter: 2014Q2

REPORT INFORMATION
  Report Type: Spontaneous
  Country: FR (occurrence: FR)
  Receive Date: 20140613
  Receipt Date: 20140613
  Transmission Date: 20141212
  Serious: Yes (Hospitalization)
  Sender: FDA-Public Use
  Company Number: FR-BRISTOL-MYERS SQUIBB COMPANY-20972808

PATIENT
  Age: 87 Year
  Sex: Female

DRUGS (8)
  1. COUMADINE [Suspect]
     Indication: ATRIAL FIBRILLATION
     Route: 048
     Dates: start: 20131211, end: 20140108
  2. LEVOTHYROX [Concomitant]
  3. BISOPROLOL FUMARATE [Concomitant]
  4. AMLOR [Concomitant]
     Dosage: CAPSULE (AMLODIPINE)
  5. KARDEGIC [Concomitant]
     Dosage: KARDEGIC 75 MG, POWDER FOR ORAL SOLUTION IN SACHET-DOSE
  6. CLAMOXYL [Concomitant]
     Dosage: CAPS
  7. CORTANCYL [Concomitant]
     Dosage: TABS
  8. INEXIUM [Concomitant]
     Dosage: GASTRO-RESISTANT TABLET (ESOMEPRAZOLE).

REACTIONS (1)
  - Renal failure acute [Not Recovered/Not Resolved]
